FAERS Safety Report 8140499 (Version 2)
Quarter: 2013Q4

REPORT INFORMATION
  Report Type: Spontaneous
  Country: US (occurrence: US)
  Receive Date: 20110916
  Receipt Date: 20131218
  Transmission Date: 20140711
  Serious: Yes (Other)
  Sender: FDA-Public Use
  Company Number: US-BAYER-2011-086549

PATIENT
  Age: 24 Year
  Sex: Female
  Weight: 87.53 kg

DRUGS (4)
  1. YAZ [Suspect]
     Dosage: UNK
     Dates: start: 200509
  2. YASMIN [Suspect]
     Dosage: UNK
     Dates: start: 200509
  3. OCELLA [Suspect]
     Dosage: UNK
     Dates: start: 200509
  4. ADVAIR DISKUS [Concomitant]
     Dosage: 1 PUFF(S), QD
     Dates: start: 20091215

REACTIONS (4)
  - Cholecystectomy [None]
  - Injury [None]
  - Pain [None]
  - Cholecystitis chronic [None]
